FAERS Safety Report 16609308 (Version 1)
Quarter: 2019Q3

REPORT INFORMATION
  Report Type: Report from Study
  Country: GB (occurrence: GB)
  Receive Date: 20190722
  Receipt Date: 20190722
  Transmission Date: 20191004
  Serious: Yes (Hospitalization)
  Sender: FDA-Public Use
  Company Number: GB-IPSEN BIOPHARMACEUTICALS, INC.-2019-07585

PATIENT
  Age: 70 Year
  Sex: Female

DRUGS (1)
  1. SOMATULINE AUTOGEL 120 MG [Suspect]
     Active Substance: LANREOTIDE ACETATE
     Indication: NEUROENDOCRINE TUMOUR
     Dosage: 120 MG/0.5 ML
     Route: 065

REACTIONS (8)
  - Muscular weakness [Unknown]
  - Asthenia [Unknown]
  - Terminal state [Unknown]
  - Dizziness [Unknown]
  - Dysphonia [Unknown]
  - Depressed mood [Unknown]
  - Lymphoedema [Unknown]
  - Balance disorder [Unknown]

NARRATIVE: CASE EVENT DATE: 201904
